FAERS Safety Report 8473671-0 (Version None)
Quarter: 2012Q2

REPORT INFORMATION
  Report Type: 
  Country: None (occurrence: None)
  Receive Date: 20120628
  Receipt Date: 20110906
  Transmission Date: 20120825
  Serious: Yes (Other)
  Sender: FDA-Public Use
  Company Number: US-MYLANLABS-2011S1017322

PATIENT
  Age: 66 Year
  Sex: Male

DRUGS (5)
  1. CLOZAPINE [Suspect]
     Indication: SCHIZOAFFECTIVE DISORDER
     Route: 048
  2. ATIVAN [Concomitant]
  3. CLOZAPINE [Suspect]
     Indication: BIPOLAR DISORDER
     Route: 048
  4. DIVALPROEX SODIUM [Concomitant]
  5. AMBIEN [Concomitant]

REACTIONS (1)
  - GRANULOCYTOPENIA [None]
